FAERS Safety Report 19556191 (Version 2)
Quarter: 2021Q3

REPORT INFORMATION
  Report Type: Report from Study
  Country: MX (occurrence: MX)
  Receive Date: 20210714
  Receipt Date: 20210823
  Transmission Date: 20211014
  Serious: Yes (Hospitalization, Other)
  Sender: FDA-Public Use
  Company Number: NVSC2021MX155153

PATIENT
  Age: 83 Year
  Sex: Female
  Weight: 67 kg

DRUGS (1)
  1. ENTRESTO [Suspect]
     Active Substance: SACUBITRIL\VALSARTAN
     Indication: CARDIAC DISORDER
     Dosage: 1 DF, BID (50MG)
     Route: 048
     Dates: start: 20210412, end: 20210619

REACTIONS (4)
  - Product use in unapproved indication [Unknown]
  - Blood pressure decreased [Recovered/Resolved]
  - Urinary tract infection [Recovering/Resolving]
  - Dehydration [Recovered/Resolved]

NARRATIVE: CASE EVENT DATE: 20210412
